FAERS Safety Report 15166091 (Version 4)
Quarter: 2018Q3

REPORT INFORMATION
  Report Type: Report from Study
  Country: US (occurrence: US)
  Receive Date: 20180719
  Receipt Date: 20180907
  Transmission Date: 20181010
  Serious: No
  Sender: FDA-Public Use
  Company Number: PHEH2018US029109

PATIENT
  Sex: Female
  Weight: 100.23 kg

DRUGS (1)
  1. COSENTYX [Suspect]
     Active Substance: SECUKINUMAB
     Indication: PSORIASIS
     Route: 058
     Dates: start: 201805

REACTIONS (9)
  - Pruritus [Unknown]
  - Bronchitis [Unknown]
  - Dysphagia [Unknown]
  - Muscle spasms [Unknown]
  - Sinusitis [Unknown]
  - Swollen tongue [Recovering/Resolving]
  - Cough [Unknown]
  - Rib fracture [Unknown]
  - Weight decreased [Unknown]
